FAERS Safety Report 4595745-7 (Version None)
Quarter: 2005Q1

REPORT INFORMATION
  Report Type: 
  Country: None (occurrence: None)
  Receive Date: 20050302
  Receipt Date: 20000405
  Transmission Date: 20050727
  Serious: Yes (Congenital Anomaly)
  Sender: FDA-Public Use
  Company Number: US-BRISTOL-MYERS SQUIBB COMPANY-10518934

PATIENT
  Sex: Female

DRUGS (3)
  1. ZERIT [Suspect]
     Route: 064
     Dates: start: 19990101
  2. VIDEX [Suspect]
     Route: 064
     Dates: start: 19990101
  3. SUSTIVA [Suspect]
     Route: 064
     Dates: start: 19990101

REACTIONS (4)
  - ABORTION INDUCED [None]
  - CONGENITAL MUSCULOSKELETAL ANOMALY [None]
  - CONGENITAL PULMONARY VALVE DISORDER [None]
  - LYMPHADENOPATHY [None]
